FAERS Safety Report 7028846-4 (Version None)
Quarter: 2010Q4

REPORT INFORMATION
  Report Type: 
  Country: None (occurrence: None)
  Receive Date: 20101004
  Receipt Date: 20101004
  Transmission Date: 20110411
  Serious: Yes (Other)
  Sender: FDA-Public Use
  Company Number: None

PATIENT
  Sex: Female
  Weight: 65.7716 kg

DRUGS (1)
  1. OXYCONTIN [Suspect]
     Indication: SPHINCTER OF ODDI DYSFUNCTION
     Dosage: 1 TABLET 4 TIMES DAILY PO
     Route: 048
     Dates: start: 20100917, end: 20101001

REACTIONS (6)
  - ABDOMINAL PAIN UPPER [None]
  - DIARRHOEA [None]
  - DRUG EFFECT DECREASED [None]
  - FLATULENCE [None]
  - PRODUCT COATING ISSUE [None]
  - PRODUCT SOLUBILITY ABNORMAL [None]
